FAERS Safety Report 7527600-4 (Version None)
Quarter: 2011Q2

REPORT INFORMATION
  Report Type: 
  Country: None (occurrence: None)
  Receive Date: 20110607
  Receipt Date: 20110603
  Transmission Date: 20111010
  Serious: No
  Sender: FDA-Public Use
  Company Number: US-PFIZER INC-2011121862

PATIENT
  Age: 80 Year
  Sex: Female
  Weight: 99.773 kg

DRUGS (5)
  1. LYRICA [Suspect]
     Indication: BACK PAIN
     Dosage: 100 MG MORNING, 50 MG AFTERNOON, 100 MG EVENING
     Route: 048
     Dates: start: 20080101
  2. GLIPIZIDE [Concomitant]
     Indication: DIABETES MELLITUS
     Dosage: 4 MG,DAILY
     Route: 048
  3. INSULIN [Concomitant]
     Indication: DIABETES MELLITUS
     Dosage: 120 IU, 2X/DAY
  4. METFORMIN [Concomitant]
     Indication: DIABETES MELLITUS
     Dosage: 750 MG, 2X/DAY
     Route: 048
  5. VITAMIN D [Concomitant]
     Dosage: 1.2 MG, 2X/DAY
     Route: 048

REACTIONS (1)
  - SKIN DISCOLOURATION [None]
